FAERS Safety Report 9433028 (Version 1)
Quarter: 2013Q3

REPORT INFORMATION
  Report Type: Spontaneous
  Country: FR (occurrence: FR)
  Receive Date: 20130731
  Receipt Date: 20130731
  Transmission Date: 20140515
  Serious: Yes (Life-Threatening, Hospitalization)
  Sender: FDA-Public Use
  Company Number: FR-PFIZER INC-2013218743

PATIENT
  Age: 61 Year
  Sex: Male

DRUGS (4)
  1. TRIATEC [Suspect]
     Dosage: UNK
     Route: 048
     Dates: start: 2003, end: 20130430
  2. PLAVIX [Concomitant]
     Dosage: UNK
  3. TAHOR [Concomitant]
     Dosage: UNK
  4. PARIET [Concomitant]
     Dosage: UNK

REACTIONS (6)
  - Angioedema [Recovered/Resolved]
  - Macroglossia [Recovered/Resolved]
  - Presyncope [Recovered/Resolved]
  - Syncope [Recovered/Resolved]
  - Hypothermia [Recovered/Resolved]
  - Abdominal pain [Recovered/Resolved]
